FAERS Safety Report 9174274 (Version 2)
Quarter: 2014Q2

REPORT INFORMATION
  Report Type: Spontaneous
  Country: US (occurrence: US)
  Receive Date: 20130320
  Receipt Date: 20140521
  Transmission Date: 20141212
  Serious: Yes (Life-Threatening, Other)
  Sender: FDA-Public Use
  Company Number: US-JNJFOC-20130307966

PATIENT
  Sex: Female

DRUGS (2)
  1. DOXIL (DOXORUBICIN HYDROCHLORIDE) [Suspect]
     Indication: OVARIAN CANCER RECURRENT
     Dosage: DAY 1
     Route: 042
  2. INTERLEUKIN-18 [Suspect]
     Indication: OVARIAN CANCER RECURRENT
     Dosage: 1, 3, 10, 30 AND 100 UG/KG ON DAYS 2 AND 9 OF EACH CYCLE
     Route: 042

REACTIONS (27)
  - Adverse event [Unknown]
  - Ovarian cancer recurrent [Unknown]
  - Thrombocytopenia [Unknown]
  - Pain [Unknown]
  - Abdominal pain [Unknown]
  - Dehydration [Unknown]
  - Vomiting [Unknown]
  - Jaundice [Unknown]
  - Hyperkalaemia [Unknown]
  - Pyrexia [Unknown]
  - Chills [Unknown]
  - Asthenia [Unknown]
  - Oedema [Unknown]
  - Pyelonephritis [Unknown]
  - Anaemia [Unknown]
  - Leukopenia [Unknown]
  - Hyperglycaemia [Unknown]
  - Fatigue [Unknown]
  - Nausea [Unknown]
  - Neutropenia [Unknown]
  - Decreased appetite [Unknown]
  - Rash [Unknown]
  - Mucosal inflammation [Unknown]
  - Constipation [Unknown]
  - Hypertension [Unknown]
  - Headache [Unknown]
  - Pruritus [Unknown]
